FAERS Safety Report 7689009-2 (Version None)
Quarter: 2011Q3

REPORT INFORMATION
  Report Type: 
  Country: None (occurrence: None)
  Receive Date: 20110817
  Receipt Date: 20110816
  Transmission Date: 20111222
  Serious: Yes (Hospitalization, Other)
  Sender: FDA-Public Use
  Company Number: PHEH2007US04066

PATIENT
  Sex: Female
  Weight: 77.097 kg

DRUGS (54)
  1. ESTRADERM [Suspect]
     Indication: MENOPAUSE
     Dosage: 0.05MG UNK
     Route: 061
     Dates: start: 19930720
  2. TAMOXIFEN CITRATE [Concomitant]
     Dosage: 10MG BID
  3. BUSPAR [Concomitant]
     Dosage: 10MG TID
  4. NORTRIPTYLINE HCL [Concomitant]
     Dosage: 50MG
  5. RITALIN [Concomitant]
  6. INDOCIN [Concomitant]
  7. PERCOCET [Concomitant]
  8. LEVOTHYROXINE SODIUM [Concomitant]
     Dosage: 50MCG
  9. ADALAT - SLOW RELEASE [Concomitant]
     Dosage: 60MG
  10. NAPROXEN [Concomitant]
  11. PREMPRO [Suspect]
     Dosage: EZ DIAL
     Dates: start: 20000103, end: 20000418
  12. PROZAC [Concomitant]
     Dosage: 10MG
  13. ZOLOFT [Concomitant]
  14. SKELAXIN [Concomitant]
  15. DARVOCET-N 50 [Concomitant]
     Dosage: 100MG
  16. PREMPRO [Suspect]
     Dosage: .625MG/2.5MG
     Dates: start: 20000401, end: 20010101
  17. CARTIA /USA/ [Concomitant]
     Dosage: 240MG UNK
  18. CARDIZEM [Concomitant]
     Dosage: 240MG
  19. KLONOPIN [Concomitant]
     Dosage: 1MG
  20. PAMELOR [Concomitant]
  21. FIORICET [Concomitant]
  22. FIORICET W/ CODEINE [Concomitant]
  23. ASPIRIN [Concomitant]
  24. ESTROGENS CONJUGATED [Suspect]
     Dosage: 0.625MG
     Route: 048
     Dates: start: 19950807, end: 19950811
  25. BUSPAR [Concomitant]
     Dosage: 15MG
  26. NORFLEX [Concomitant]
  27. COMPAZINE [Concomitant]
  28. MOTRIN [Concomitant]
  29. PREMPRO [Suspect]
     Indication: MENOPAUSE
     Dosage: 0.625MG/2.5MG
  30. PROMETHAZINE [Concomitant]
     Dosage: 25MG
  31. MIDRIN [Concomitant]
  32. CELEBREX [Concomitant]
     Dosage: 100MG
  33. STRATTERA [Concomitant]
  34. PREMPRO [Suspect]
     Dosage: .625MG/5MG
     Dates: start: 20010201, end: 20020412
  35. COZAAR [Concomitant]
     Dosage: 50MG
  36. VALIUM [Concomitant]
     Dosage: 10MG
  37. DESYREL [Concomitant]
  38. VOLTAREN [Concomitant]
  39. SOMA [Concomitant]
     Dosage: 350MG
  40. CALAN [Concomitant]
  41. NEURONTIN [Concomitant]
  42. PROVERA [Suspect]
     Indication: MENOPAUSE
     Dosage: 10MG
  43. SYNTHROID [Concomitant]
     Indication: HYPOTHYROIDISM
     Dosage: .05MG
  44. TYLENOL W/ CODEINE NO. 3 [Concomitant]
  45. LOPRESSOR [Concomitant]
  46. PROTONIX [Concomitant]
  47. IBUPROFEN [Concomitant]
  48. SEROQUEL [Concomitant]
  49. CENTURY PLUS [Concomitant]
  50. VISTARIL [Concomitant]
  51. PREMARIN [Suspect]
     Dosage: 0.3MG QD
  52. VICODIN [Concomitant]
  53. ULTRAM [Concomitant]
  54. LEVOTHROID [Concomitant]

REACTIONS (56)
  - BREAST CALCIFICATIONS [None]
  - MIGRAINE [None]
  - CEREBRAL INFARCTION [None]
  - ARTERIOSCLEROSIS [None]
  - MYALGIA [None]
  - ALOPECIA [None]
  - WEIGHT DECREASED [None]
  - CHRONIC FATIGUE SYNDROME [None]
  - FALL [None]
  - PAIN [None]
  - SCIATICA [None]
  - LOSS OF CONSCIOUSNESS [None]
  - HEADACHE [None]
  - ARTHRALGIA [None]
  - FIBROMYALGIA [None]
  - SPINAL OSTEOARTHRITIS [None]
  - BONE PAIN [None]
  - HAEMOGLOBIN DECREASED [None]
  - LOSS OF LIBIDO [None]
  - OEDEMA PERIPHERAL [None]
  - HOT FLUSH [None]
  - OVARIAN FAILURE [None]
  - SUICIDAL IDEATION [None]
  - DYSPNOEA [None]
  - RADICULITIS BRACHIAL [None]
  - EPIGASTRIC DISCOMFORT [None]
  - PAIN IN EXTREMITY [None]
  - MUSCULOSKELETAL STIFFNESS [None]
  - NIPPLE DISORDER [None]
  - BREAST CYST [None]
  - FAT NECROSIS [None]
  - HYPERTENSION [None]
  - PALPITATIONS [None]
  - OROPHARYNGEAL PAIN [None]
  - KARYOTYPE ANALYSIS ABNORMAL [None]
  - BREAST PAIN [None]
  - DEPRESSION [None]
  - HYPERHIDROSIS [None]
  - ARTHRITIS [None]
  - BACK PAIN [None]
  - INTERVERTEBRAL DISC DISORDER [None]
  - EYE SWELLING [None]
  - BREAST CANCER [None]
  - DIZZINESS [None]
  - NAUSEA [None]
  - GASTROOESOPHAGEAL REFLUX DISEASE [None]
  - OSTEOPENIA [None]
  - CERVICOBRACHIAL SYNDROME [None]
  - ASTHENIA [None]
  - MUSCLE SPASMS [None]
  - VASCULAR CALCIFICATION [None]
  - OSTEOARTHRITIS [None]
  - MUSCULOSKELETAL CHEST PAIN [None]
  - RED BLOOD CELL COUNT DECREASED [None]
  - COUGH [None]
  - BREAST TENDERNESS [None]
